FAERS Safety Report 4943530-6 (Version None)
Quarter: 2006Q1

REPORT INFORMATION
  Report Type: 
  Country: None (occurrence: None)
  Receive Date: 20060309
  Receipt Date: 20060227
  Transmission Date: 20060701
  Serious: Yes (Death)
  Sender: FDA-Public Use
  Company Number: 06H-163-0305967-00

PATIENT
  Age: 37 Year
  Sex: Male

DRUGS (6)
  1. DIPHENHYDRAMINE HCL [Suspect]
     Indication: COMPLETED SUICIDE
  2. PROPOXYPHENE HCL [Suspect]
     Indication: COMPLETED SUICIDE
  3. QUETIAPINE FUMARATE [Suspect]
     Indication: COMPLETED SUICIDE
  4. CITALOPRAM (CITALOPRAM) [Suspect]
     Indication: COMPLETED SUICIDE
  5. BUPROPION HCL [Suspect]
     Indication: COMPLETED SUICIDE
  6. NORPROPOXYPHENE [Suspect]
     Indication: COMPLETED SUICIDE

REACTIONS (3)
  - CARBON MONOXIDE POISONING [None]
  - COMPLETED SUICIDE [None]
  - MULTIPLE DRUG OVERDOSE [None]
